FAERS Safety Report 7689149-8 (Version None)
Quarter: 2011Q3

REPORT INFORMATION
  Report Type: 
  Country: None (occurrence: None)
  Receive Date: 20110811
  Receipt Date: 20110801
  Transmission Date: 20111222
  Serious: Yes (Hospitalization, Other)
  Sender: FDA-Public Use
  Company Number: USA/US/11/0020591

PATIENT
  Age: 59 Year
  Sex: Male
  Weight: 90.7194 kg

DRUGS (21)
  1. FOLIC ACID [Concomitant]
  2. OMEPRAZOLE [Concomitant]
  3. AZITHROMYCIN [Suspect]
     Indication: SINUSITIS
  4. FEXOFENADINE HCL [Concomitant]
  5. MULTIPLE VITAMINS (MULTIPLE VITAMINS) [Concomitant]
  6. FISH OIL (FISH OIL) [Concomitant]
  7. METHOTREXATE [Concomitant]
  8. DURAGESIC FENTANYL PATCH ( FENTANYL) [Concomitant]
  9. CETIRIZINE HCL [Concomitant]
  10. ROPINIROL HYDROCHLORIDE (ROPINIROLE HYDROCHLORIDE) [Concomitant]
  11. TESTOSTERONE [Concomitant]
  12. AUGMENTIN '125' [Suspect]
     Indication: SINUSITIS
     Dates: start: 20101201
  13. SIMVASTATIN 40 MG (SIMVASTATIN) [Concomitant]
  14. PROPRANOLOL LA (PROPRANOLOL) [Concomitant]
  15. ASPIRIN [Concomitant]
  16. HUMIRA [Suspect]
     Indication: PSORIATIC ARTHROPATHY
     Dosage: 40 MG, 1 IN 2 WEEKS , SUBCUTANEOUS ; 40 MG, 1 IN 2 WEEKS, SUBCUTANEOUS
     Route: 058
     Dates: end: 20110101
  17. HUMIRA [Suspect]
     Indication: PSORIATIC ARTHROPATHY
     Dosage: 40 MG, 1 IN 2 WEEKS , SUBCUTANEOUS ; 40 MG, 1 IN 2 WEEKS, SUBCUTANEOUS
     Route: 058
     Dates: start: 20110501
  18. CLONAZEPAM [Concomitant]
  19. ESCITALOPRAM [Concomitant]
  20. CALCIUM SANDOZ (CALCIUM GLUCONATE) [Concomitant]
  21. NAPROXEN [Concomitant]

REACTIONS (3)
  - SEPSIS [None]
  - LOSS OF CONSCIOUSNESS [None]
  - CLOSTRIDIAL INFECTION [None]
